FAERS Safety Report 9912119 (Version 1)
Quarter: 2014Q1

REPORT INFORMATION
  Report Type: Spontaneous
  Country: US (occurrence: US)
  Receive Date: 20140219
  Receipt Date: 20140219
  Transmission Date: 20141002
  Serious: Yes (Hospitalization, Other)
  Sender: FDA-Public Use
  Company Number: US-BRISTOL-MYERS SQUIBB COMPANY-20147872

PATIENT
  Age: 48 Year
  Sex: Female

DRUGS (1)
  1. ABILIFY [Suspect]
     Indication: ANXIETY
     Dosage: DAILY DOSE RANGED BETWEEN 7.5MG AND 10MG

REACTIONS (5)
  - Ketoacidosis [Unknown]
  - Dehydration [Unknown]
  - Suicidal ideation [Unknown]
  - Weight decreased [Unknown]
  - Hypersomnia [Unknown]
